FAERS Safety Report 14659716 (Version 11)
Quarter: 2020Q4

REPORT INFORMATION
  Report Type: Report from Study
  Country: None (occurrence: NL)
  Receive Date: 20180319
  Receipt Date: 20201027
  Transmission Date: 20210113
  Serious: Yes (Other)
  Sender: FDA-Public Use
  Company Number: NL-ABBVIE-18K-114-2293415-00

PATIENT
  Sex: Male
  Weight: 78.6 kg

DRUGS (4)
  1. DUODOPA [Suspect]
     Active Substance: CARBIDOPA\LEVODOPA
     Dosage: MD: 12.5 ML CD: 3.6 ML/H ED: 3.0 ML, 16 HOUR ADMINISTRATION
     Route: 050
  2. MOVICOLON [Concomitant]
     Active Substance: POLYETHYLENE GLYCOL 3350\POTASSIUM CHLORIDE\SODIUM BICARBONATE\SODIUM CHLORIDE
     Indication: ABNORMAL FAECES
  3. MADOPAR [Concomitant]
     Active Substance: BENSERAZIDE HYDROCHLORIDE\LEVODOPA
     Indication: PARKINSON^S DISEASE
  4. DUODOPA [Suspect]
     Active Substance: CARBIDOPA\LEVODOPA
     Indication: PARKINSON^S DISEASE
     Dosage: MD 12, CD 3.3, ED 3,REMAINS AT 16 HOURS
     Route: 050
     Dates: start: 20180222, end: 2018

REACTIONS (50)
  - Balance disorder [Not Recovered/Not Resolved]
  - Initial insomnia [Recovered/Resolved]
  - Memory impairment [Unknown]
  - Malaise [Unknown]
  - Dyskinesia [Recovered/Resolved]
  - Stoma site discharge [Recovered/Resolved]
  - Stoma site hypergranulation [Unknown]
  - Cognitive disorder [Recovering/Resolving]
  - Catheter site dryness [Recovered/Resolved]
  - Freezing phenomenon [Not Recovered/Not Resolved]
  - Stoma site discharge [Recovered/Resolved]
  - Infrequent bowel movements [Recovered/Resolved]
  - Amnesia [Not Recovered/Not Resolved]
  - Nocturia [Not Recovered/Not Resolved]
  - Fatigue [Not Recovered/Not Resolved]
  - Somnolence [Not Recovered/Not Resolved]
  - On and off phenomenon [Not Recovered/Not Resolved]
  - Unevaluable event [Not Recovered/Not Resolved]
  - Therapeutic product effect decreased [Not Recovered/Not Resolved]
  - Tension [Unknown]
  - Speech disorder [Recovering/Resolving]
  - Abnormal dreams [Not Recovered/Not Resolved]
  - Stoma site discharge [Recovered/Resolved]
  - Parkinson^s disease [Not Recovered/Not Resolved]
  - Fibroma [Not Recovered/Not Resolved]
  - Orthostatic intolerance [Unknown]
  - Cognitive disorder [Not Recovered/Not Resolved]
  - Product administration error [Not Recovered/Not Resolved]
  - Abnormal dreams [Recovered/Resolved]
  - Weight increased [Unknown]
  - Sleep disorder [Not Recovered/Not Resolved]
  - Nausea [Recovered/Resolved]
  - Stoma site discharge [Not Recovered/Not Resolved]
  - Unevaluable event [Unknown]
  - Device dislocation [Not Recovered/Not Resolved]
  - Depressed level of consciousness [Not Recovered/Not Resolved]
  - Inappropriate schedule of product administration [Recovered/Resolved]
  - Memory impairment [Not Recovered/Not Resolved]
  - Medical device discomfort [Not Recovered/Not Resolved]
  - Pollakiuria [Not Recovered/Not Resolved]
  - Anosognosia [Not Recovered/Not Resolved]
  - Muscle rigidity [Not Recovered/Not Resolved]
  - Decreased appetite [Recovered/Resolved]
  - Hyperhidrosis [Not Recovered/Not Resolved]
  - Dyskinesia [Not Recovered/Not Resolved]
  - Bradykinesia [Not Recovered/Not Resolved]
  - Stoma site erythema [Recovered/Resolved]
  - Stoma site erythema [Not Recovered/Not Resolved]
  - Therapeutic product effect incomplete [Recovered/Resolved]
  - Device alarm issue [Not Recovered/Not Resolved]

NARRATIVE: CASE EVENT DATE: 2018
